FAERS Safety Report 7391150-9 (Version None)
Quarter: 2011Q2

REPORT INFORMATION
  Report Type: 
  Country: None (occurrence: None)
  Receive Date: 20110404
  Receipt Date: 20110330
  Transmission Date: 20111010
  Serious: Yes (Other)
  Sender: FDA-Public Use
  Company Number: AT-ABBOTT-11P-009-0715598-00

PATIENT
  Sex: Male

DRUGS (2)
  1. ULTRACORTENOL AT [Concomitant]
     Indication: PRODUCT USED FOR UNKNOWN INDICATION
  2. HUMIRA [Suspect]
     Indication: PSORIASIS

REACTIONS (2)
  - COUGH [None]
  - ASPHYXIA [None]
